FAERS Safety Report 8201280-7 (Version None)
Quarter: 2012Q1

REPORT INFORMATION
  Report Type: 
  Country: None (occurrence: None)
  Receive Date: 20120312
  Receipt Date: 20120309
  Transmission Date: 20120608
  Serious: Yes (Life-Threatening, Hospitalization)
  Sender: FDA-Public Use
  Company Number: PHFR2012GB000980

PATIENT
  Sex: Female

DRUGS (7)
  1. ASPIRIN [Concomitant]
     Dosage: 75 MG, UNK
     Route: 048
  2. LITHIUM CARBONATE [Concomitant]
     Dosage: 400 MG, DAILY
     Route: 048
  3. LOPERAMIDE HCL [Concomitant]
     Dosage: 210 MG, DAILY
     Route: 048
  4. CLOZARIL [Suspect]
     Indication: SCHIZOPHRENIA
     Route: 048
     Dates: start: 20040806
  5. LEVOTHYROXINE SODIUM [Concomitant]
     Dosage: 25 UG,
     Route: 048
  6. LAMOTRIGINE [Concomitant]
     Dosage: 50 MG, DAILY
     Route: 048
  7. CLOZARIL [Suspect]
     Dosage: UNK UKN, UNK

REACTIONS (4)
  - FALL [None]
  - PNEUMONIA [None]
  - SEPSIS [None]
  - CIRCULATORY COLLAPSE [None]
